FAERS Safety Report 4895359-5 (Version None)
Quarter: 2006Q1

REPORT INFORMATION
  Report Type: 
  Country: None (occurrence: None)
  Receive Date: 20060130
  Receipt Date: 20060125
  Transmission Date: 20060701
  Serious: Yes (Death)
  Sender: FDA-Public Use
  Company Number: PHNU2006DE00662

PATIENT
  Sex: Male

DRUGS (2)
  1. SOLIAN [Concomitant]
     Route: 048
  2. LEPONEX [Suspect]
     Dosage: UP TO 450 MG/DAY
     Route: 048
     Dates: start: 20010101

REACTIONS (1)
  - DIABETIC HYPERGLYCAEMIC COMA [None]
